FAERS Safety Report 4475769-0 (Version None)
Quarter: 2004Q4

REPORT INFORMATION
  Report Type: 
  Country: None (occurrence: None)
  Receive Date: 20041015
  Receipt Date: 20041012
  Transmission Date: 20050328
  Serious: Yes (Death)
  Sender: FDA-Public Use
  Company Number: US-GLAXOSMITHKLINE-A0529506A

PATIENT
  Age: 81 Year
  Sex: Male

DRUGS (3)
  1. REQUIP [Suspect]
     Indication: PARKINSON'S DISEASE
     Dates: start: 20040901, end: 20041001
  2. ARICEPT [Concomitant]
  3. SEROQUEL [Concomitant]

REACTIONS (1)
  - MYOCARDIAL INFARCTION [None]
